FAERS Safety Report 20110044 (Version 1)
Quarter: 2021Q4

REPORT INFORMATION
  Report Type: Spontaneous
  Country: US (occurrence: None)
  Receive Date: 20211124
  Receipt Date: 20211124
  Transmission Date: 20220304
  Serious: Yes (Other)
  Sender: FDA-Public Use
  Company Number: None

PATIENT
  Age: 75 Year
  Sex: Male

DRUGS (4)
  1. FLOMAX [Suspect]
     Active Substance: TAMSULOSIN HYDROCHLORIDE
     Indication: Urine flow decreased
     Dosage: FREQUENCY : DAILY;?
     Route: 048
     Dates: start: 20211104, end: 20211111
  2. ELIQUIS [Concomitant]
     Active Substance: APIXABAN
  3. Vit. D3 [Concomitant]
  4. Vit. B12 [Concomitant]

REACTIONS (2)
  - Atrial fibrillation [None]
  - Cardioversion [None]

NARRATIVE: CASE EVENT DATE: 20211111
